FAERS Safety Report 5254324-9 (Version None)
Quarter: 2007Q1

REPORT INFORMATION
  Report Type: 
  Country: None (occurrence: None)
  Receive Date: 20070302
  Receipt Date: 20070221
  Transmission Date: 20070707
  Serious: Yes (Hospitalization)
  Sender: FDA-Public Use
  Company Number: US-SANOFI-SYNTHELABO-A03200701165

PATIENT
  Age: 31 Year
  Sex: Female
  Weight: 53.5 kg

DRUGS (2)
  1. AMBIEN [Suspect]
     Indication: INSOMNIA
     Route: 048
     Dates: start: 20020221, end: 20020222
  2. PAXIL [Concomitant]
     Route: 048
     Dates: start: 20020101, end: 20020201

REACTIONS (4)
  - DEPRESSED LEVEL OF CONSCIOUSNESS [None]
  - DYSARTHRIA [None]
  - MANIA [None]
  - MONOPARESIS [None]
